FAERS Safety Report 7427638-1 (Version None)
Quarter: 2011Q1

REPORT INFORMATION
  Report Type: 
  Country: None (occurrence: None)
  Receive Date: 20110302
  Receipt Date: 20101203
  Transmission Date: 20110831
  Serious: No
  Sender: FDA-Public Use
  Company Number: 018107

PATIENT
  Sex: Male

DRUGS (2)
  1. MERCAPTOPURINE [Concomitant]
  2. CIMZIA [Suspect]
     Indication: CROHN'S DISEASE
     Dosage: (SUBCUTANEOUS)
     Route: 058
     Dates: start: 20100608

REACTIONS (3)
  - BRONCHITIS [None]
  - LARYNGITIS [None]
  - NASOPHARYNGITIS [None]
